FAERS Safety Report 24044368 (Version 1)
Quarter: 2024Q3

REPORT INFORMATION
  Report Type: Report from Study
  Country: DE (occurrence: DE)
  Receive Date: 20240703
  Receipt Date: 20240703
  Transmission Date: 20241016
  Serious: Yes (Hospitalization)
  Sender: ABBVIE
  Company Number: DE-ABBVIE-5823972

PATIENT
  Age: 49 Year
  Sex: Male
  Weight: 80 kg

DRUGS (5)
  1. RINVOQ [Suspect]
     Active Substance: UPADACITINIB
     Indication: Dermatitis atopic
     Route: 048
     Dates: start: 20220524, end: 20240605
  2. LORATADINE [Concomitant]
     Active Substance: LORATADINE
     Indication: Rhinitis allergic
  3. CORTISONE [Concomitant]
     Active Substance: CORTISONE
     Indication: Joint abscess
     Route: 048
     Dates: start: 20240612, end: 20240614
  4. CORTISONE [Concomitant]
     Active Substance: CORTISONE
     Indication: Joint abscess
     Route: 048
     Dates: start: 20240605, end: 20240611
  5. CETIRIZINE [Concomitant]
     Active Substance: CETIRIZINE HYDROCHLORIDE
     Indication: Rhinitis allergic

REACTIONS (1)
  - Staphylococcal infection [Not Recovered/Not Resolved]

NARRATIVE: CASE EVENT DATE: 20240601
